FAERS Safety Report 20375636 (Version 1)
Quarter: 2022Q1

REPORT INFORMATION
  Report Type: Spontaneous
  Country: DE (occurrence: DE)
  Receive Date: 20220125
  Receipt Date: 20220125
  Transmission Date: 20220423
  Serious: Yes (Other)
  Sender: FDA-Public Use
  Company Number: DE-PFIZER INC-202200066523

PATIENT
  Sex: Male

DRUGS (2)
  1. AXITINIB [Suspect]
     Active Substance: AXITINIB
     Indication: Renal cell carcinoma
  2. BAVENCIO [Suspect]
     Active Substance: AVELUMAB
     Indication: Renal cell carcinoma

REACTIONS (1)
  - Cardiomyopathy [Unknown]
